FAERS Safety Report 9508036 (Version 4)
Quarter: 2014Q3

REPORT INFORMATION
  Report Type: Report from Study
  Country: US (occurrence: US)
  Receive Date: 20130909
  Receipt Date: 20140829
  Transmission Date: 20150326
  Serious: Yes (Other)
  Sender: FDA-Public Use
  Company Number: US-SANOFI-AVENTIS-2013SA088844

PATIENT
  Age: 51 Year
  Sex: Female

DRUGS (2)
  1. KLONOPIN [Concomitant]
     Active Substance: CLONAZEPAM
  2. AUBAGIO [Suspect]
     Active Substance: TERIFLUNOMIDE
     Indication: MULTIPLE SCLEROSIS
     Route: 048
     Dates: start: 20130814

REACTIONS (11)
  - Cough [Unknown]
  - Herpes zoster [Unknown]
  - Extra dose administered [Unknown]
  - Gait disturbance [Unknown]
  - Nausea [Unknown]
  - Fall [Unknown]
  - Fatigue [Recovering/Resolving]
  - Pain in extremity [Unknown]
  - Bronchitis [Unknown]
  - Abdominal pain [Unknown]
  - Foot fracture [Unknown]

NARRATIVE: CASE EVENT DATE: 20130831
